FAERS Safety Report 9465518 (Version 3)
Quarter: 2013Q3

REPORT INFORMATION
  Report Type: Spontaneous
  Country: US (occurrence: US)
  Receive Date: 20130820
  Receipt Date: 20130930
  Transmission Date: 20140515
  Serious: Yes (Other)
  Sender: FDA-Public Use
  Company Number: US-009507513-1308USA005969

PATIENT
  Age: 92 Year
  Sex: Male

DRUGS (2)
  1. TRUSOPT [Suspect]
     Dosage: UNK
     Route: 047
  2. LUMIGAN [Concomitant]

REACTIONS (4)
  - Anaphylactic shock [Not Recovered/Not Resolved]
  - Food allergy [Not Recovered/Not Resolved]
  - Adverse event [Not Recovered/Not Resolved]
  - Swelling face [Not Recovered/Not Resolved]
